FAERS Safety Report 10253920 (Version 1)
Quarter: 2014Q2

REPORT INFORMATION
  Report Type: Report from Study
  Country: JP (occurrence: JP)
  Receive Date: 20140623
  Receipt Date: 20140623
  Transmission Date: 20141212
  Serious: No
  Sender: FDA-Public Use
  Company Number: PHHY2013JP157191

PATIENT
  Age: 83 Year
  Sex: Male

DRUGS (2)
  1. TASIGNA [Suspect]
     Indication: CHRONIC MYELOID LEUKAEMIA
     Dosage: 300 MG, PER DAY
     Dates: start: 201208
  2. PREDONINE [Concomitant]
     Dosage: UNK UKN, UNK

REACTIONS (2)
  - Thrombocytopenia [Unknown]
  - Blood creatine phosphokinase increased [Unknown]
